FAERS Safety Report 17367327 (Version 4)
Quarter: 2022Q3

REPORT INFORMATION
  Report Type: Spontaneous
  Country: SE (occurrence: SE)
  Receive Date: 20200204
  Receipt Date: 20220920
  Transmission Date: 20221027
  Serious: Yes (Death, Life-Threatening, Hospitalization)
  Sender: FDA-Public Use
  Company Number: SE-MPA-1578925004920

PATIENT
  Age: 71 Year
  Sex: Male
  Weight: 85 kg

DRUGS (2)
  1. KEYTRUDA [Suspect]
     Active Substance: PEMBROLIZUMAB
     Indication: Lung adenocarcinoma
     Dosage: DOSE 1:STRENGTH 25 MG/L
     Dates: start: 20191202, end: 20191202
  2. KEYTRUDA [Suspect]
     Active Substance: PEMBROLIZUMAB
     Dosage: DOSE 2:STRENGTH 25 MG/L
     Dates: start: 20191223, end: 20191223

REACTIONS (11)
  - Respiratory muscle weakness [Fatal]
  - Visual impairment [Fatal]
  - Dyspnoea [Fatal]
  - Guillain-Barre syndrome [Fatal]
  - Bulbar palsy [Fatal]
  - Confusional state [Fatal]
  - Ophthalmoplegia [Fatal]
  - Respiratory acidosis [Fatal]
  - Muscle disorder [Fatal]
  - Areflexia [Fatal]
  - Muscular weakness [Fatal]

NARRATIVE: CASE EVENT DATE: 20191201
